FAERS Safety Report 25627788 (Version 1)
Quarter: 2025Q3

REPORT INFORMATION
  Report Type: Spontaneous
  Country: US (occurrence: US)
  Receive Date: 20250731
  Receipt Date: 20250731
  Transmission Date: 20251020
  Serious: No
  Sender: MYLAN
  Company Number: US-MYLANLABS-2025M1061904

PATIENT
  Age: 69 Year
  Sex: Female

DRUGS (1)
  1. CYCLOSPORINE [Suspect]
     Active Substance: CYCLOSPORINE
     Indication: Corneal disorder
     Dosage: 1 GTT DROPS, BID (1 DROP IN EACH EYE, TWICE A DAY)
     Dates: start: 20250611, end: 20250616

REACTIONS (8)
  - Eye irritation [Recovered/Resolved]
  - Ocular hyperaemia [Recovered/Resolved]
  - Eye pruritus [Recovered/Resolved]
  - Eye swelling [Unknown]
  - Eye discharge [Recovered/Resolved]
  - Product substitution issue [Unknown]
  - Therapy cessation [Unknown]
  - Off label use [Unknown]

NARRATIVE: CASE EVENT DATE: 20250613
